FAERS Safety Report 25550036 (Version 2)
Quarter: 2025Q3

REPORT INFORMATION
  Report Type: Report from Study
  Country: US (occurrence: US)
  Receive Date: 20250714
  Receipt Date: 20250821
  Transmission Date: 20251021
  Serious: Yes (Other)
  Sender: OTSUKA
  Company Number: US-MMM-Otsuka-VORP9X83

PATIENT
  Sex: Female

DRUGS (11)
  1. TOLVAPTAN [Suspect]
     Active Substance: TOLVAPTAN
     Indication: Congenital cystic kidney disease
     Dosage: 15 MG, QD (15 MG 1 TABLET EVERY MORNING)
     Route: 048
     Dates: start: 20250313
  2. TOLVAPTAN [Suspect]
     Active Substance: TOLVAPTAN
     Dosage: 15 MG, QD (15 MG 1 TABLET 8 H LATER)
     Route: 048
     Dates: start: 20250313
  3. ADVAIR HFA [Concomitant]
     Active Substance: FLUTICASONE PROPIONATE\SALMETEROL XINAFOATE
     Indication: Product used for unknown indication
     Route: 065
  4. ALBUTEROL SULFATE [Concomitant]
     Active Substance: ALBUTEROL SULFATE
     Indication: Product used for unknown indication
     Route: 065
  5. AMLODIPINE [Concomitant]
     Active Substance: AMLODIPINE BESYLATE
     Indication: Product used for unknown indication
     Route: 065
  6. CYMBALTA [Concomitant]
     Active Substance: DULOXETINE HYDROCHLORIDE
     Indication: Product used for unknown indication
     Route: 065
  7. FEBUXOSTAT [Concomitant]
     Active Substance: FEBUXOSTAT
     Indication: Product used for unknown indication
     Route: 065
  8. LOSARTAN POTASSIUM [Concomitant]
     Active Substance: LOSARTAN POTASSIUM
     Indication: Product used for unknown indication
     Route: 065
  9. OXYCODONE [Concomitant]
     Active Substance: OXYCODONE
     Indication: Product used for unknown indication
     Route: 065
  10. TRAZODONE [Concomitant]
     Active Substance: TRAZODONE HYDROCHLORIDE
     Indication: Product used for unknown indication
     Route: 065
  11. WELLBUTRIN [Concomitant]
     Active Substance: BUPROPION HYDROCHLORIDE
     Indication: Product used for unknown indication
     Route: 065

REACTIONS (32)
  - Cerebrovascular accident [Unknown]
  - Oral pain [Unknown]
  - Parosmia [Unknown]
  - Memory impairment [Unknown]
  - Peripheral swelling [Unknown]
  - Brain fog [Unknown]
  - Scratch [Unknown]
  - Contusion [Unknown]
  - Onychoclasis [Unknown]
  - Confusional state [Unknown]
  - Flatulence [Unknown]
  - Chest discomfort [Unknown]
  - Candida infection [Recovered/Resolved]
  - Stomatitis [Unknown]
  - Cough [Unknown]
  - Depression [Unknown]
  - Glomerular filtration rate decreased [Unknown]
  - Dry skin [Unknown]
  - Dyspepsia [Unknown]
  - Gastrooesophageal reflux disease [Unknown]
  - Constipation [Unknown]
  - Abdominal pain [Unknown]
  - Abdominal distension [Unknown]
  - Dry mouth [Unknown]
  - Fatigue [Unknown]
  - Polydipsia [Unknown]
  - Thirst [Unknown]
  - Pollakiuria [Unknown]
  - Polyuria [Unknown]
  - Dehydration [Unknown]
  - Underdose [Unknown]
  - Product dose omission issue [Unknown]

NARRATIVE: CASE EVENT DATE: 20250101
